FAERS Safety Report 10145973 (Version 1)
Quarter: 2014Q2

REPORT INFORMATION
  Report Type: Report from Study
  Country: US (occurrence: US)
  Receive Date: 20140501
  Receipt Date: 20140501
  Transmission Date: 20141212
  Serious: Yes (Hospitalization, Other)
  Sender: FDA-Public Use
  Company Number: US-SA-2014SA052356

PATIENT
  Age: 56 Year
  Sex: Female

DRUGS (2)
  1. APIDRA [Suspect]
     Indication: DIABETES MELLITUS
     Dosage: DOSE: 5-8 UNITS TID
     Route: 065
     Dates: start: 2005
  2. LANTUS [Concomitant]
     Dosage: FOR ABOUT 10 YEARS, EVERY MORNING DOSE:20 UNIT(S)

REACTIONS (4)
  - Cerebrovascular accident [Unknown]
  - Investigation [Unknown]
  - Feeling abnormal [Unknown]
  - Gait disturbance [Unknown]
